FAERS Safety Report 9173982 (Version 1)
Quarter: 2013Q1

REPORT INFORMATION
  Report Type: Spontaneous
  Country: CH (occurrence: None)
  Receive Date: 20130315
  Receipt Date: 20130315
  Transmission Date: 20140127
  Serious: Yes (Hospitalization)
  Sender: FDA-Public Use
  Company Number: 2013030038

PATIENT
  Age: 77 Year
  Sex: Male

DRUGS (12)
  1. TOREM (TORASEMIDE) [Suspect]
     Indication: HYPERTENSION
     Route: 048
     Dates: end: 201211
  2. FENTANYL [Suspect]
     Indication: PRIMARY PROGRESSIVE MULTIPLE SCLEROSIS
     Dosage: 1 IN 3 DAYS CUTANEOUS
     Route: 048
     Dates: start: 201211, end: 20121120
  3. AMLODIPIN HEXAL (AMLODIPINE) [Concomitant]
  4. CARBIMAZOL (CARBIMAZOLE) [Concomitant]
  5. CITALOPRAM (CITALOPRAM) [Concomitant]
  6. LYRICA (PREGABALIN) [Concomitant]
  7. METOLAZON (METOLAZONE) [Concomitant]
  8. SIRDALUD (TIZANIDINE HYDROCHLORIDE) [Concomitant]
  9. MARCOUMAR (PHENPROCOUMON) [Concomitant]
  10. MIRTAZAPIN (MIRTAZAPINE) [Concomitant]
  11. TAVOR (LORAZEPAM) [Concomitant]
  12. VERSATIS (LIDOCAINE) [Concomitant]

REACTIONS (8)
  - Overdose [None]
  - Dysphagia [None]
  - Pneumonia aspiration [None]
  - Toxicity to various agents [None]
  - Somnolence [None]
  - Fatigue [None]
  - Miosis [None]
  - Multiple sclerosis [None]
